FAERS Safety Report 6278124-6 (Version None)
Quarter: 2009Q3

REPORT INFORMATION
  Report Type: 
  Country: None (occurrence: None)
  Receive Date: 20090720
  Receipt Date: 20090707
  Transmission Date: 20100115
  Serious: Yes (Death, Hospitalization)
  Sender: FDA-Public Use
  Company Number: 2009-01845

PATIENT
  Age: 72 Year
  Sex: Male
  Weight: 72 kg

DRUGS (13)
  1. VELCADE [Suspect]
     Indication: MULTIPLE MYELOMA
     Dosage: 3.5 MG,; 1.07 MG/M2, INTRAVENOUS
     Route: 042
     Dates: start: 20090120, end: 20090314
  2. VELCADE [Suspect]
     Indication: MULTIPLE MYELOMA
     Dosage: 3.5 MG,; 1.07 MG/M2, INTRAVENOUS
     Route: 042
     Dates: start: 20090325, end: 20090330
  3. VELCADE [Suspect]
     Indication: MULTIPLE MYELOMA
     Dosage: 3.5 MG,; 1.07 MG/M2, INTRAVENOUS
     Route: 042
     Dates: start: 20090422, end: 20090422
  4. RAMIPRIL [Concomitant]
  5. DIGOXIN [Concomitant]
  6. FONDAPARINUX SODIUM (FONDAPARINUX SODIUM) [Concomitant]
  7. POTASSIUM CHLORIDE W/SODIUM CHLORIDE (POTASSIUM CHLORIDE, SODIUM CHLOR [Concomitant]
  8. PANTOPRAZOLE SODIUM [Concomitant]
  9. ALPRAZOLAM [Concomitant]
  10. ESCITALOPRAM [Concomitant]
  11. ATENOLOL [Concomitant]
  12. NEFOPAM HYDROCHLORIDE (NEFOPAM HYDROCHLORIDE) [Concomitant]
  13. BUDESONIDE [Concomitant]

REACTIONS (4)
  - ACUTE RESPIRATORY DISTRESS SYNDROME [None]
  - ATRIAL FIBRILLATION [None]
  - CARDIAC FAILURE [None]
  - MULTI-ORGAN FAILURE [None]
